FAERS Safety Report 20583128 (Version 1)
Quarter: 2022Q1

REPORT INFORMATION
  Report Type: Spontaneous
  Country: CN (occurrence: CN)
  Receive Date: 20220311
  Receipt Date: 20220311
  Transmission Date: 20220424
  Serious: Yes (Hospitalization, Other)
  Sender: FDA-Public Use
  Company Number: CN-BAXTER-2022BAX004989

PATIENT
  Age: 50 Year
  Sex: Female
  Weight: 62 kg

DRUGS (5)
  1. CYCLOPHOSPHAMIDE [Suspect]
     Active Substance: CYCLOPHOSPHAMIDE
     Indication: Breast cancer female
     Dosage: CYCLOPHOSPHAMIDE FOR INJECTION (0.90G) + VEHICLE 0.9% SODIUM CHLORIDE INJECTION (100ML)
     Route: 041
     Dates: start: 20220125, end: 20220125
  2. SODIUM CHLORIDE [Suspect]
     Active Substance: SODIUM CHLORIDE
     Indication: Medication dilution
     Dosage: CYCLOPHOSPHAMIDE FOR INJECTION (0.90G) + VEHICLE 0.9% SODIUM CHLORIDE INJECTION (100ML)
     Route: 041
     Dates: start: 20220125, end: 20220125
  3. SODIUM CHLORIDE [Suspect]
     Active Substance: SODIUM CHLORIDE
     Dosage: EPIRUBICIN HYDROCHLORIDE 120 MG + VEHICLE STERILE WATER FOR INJECTION 50ML, 0.9% NS 100ML
     Route: 041
     Dates: start: 20220125, end: 20220125
  4. STERILE WATER FOR INJECTION [Suspect]
     Active Substance: WATER
     Indication: Medication dilution
     Dosage: EPIRUBICIN HYDROCHLORIDE 120 MG + VEHICLE STERILE WATER FOR INJECTION 50ML, 0.9% NS 100ML
     Route: 041
     Dates: start: 20220125, end: 20220125
  5. EPIRUBICIN HYDROCHLORIDE [Suspect]
     Active Substance: EPIRUBICIN HYDROCHLORIDE
     Indication: Breast cancer female
     Dosage: EPIRUBICIN HYDROCHLORIDE 120 MG + VEHICLE STERILE WATER FOR INJECTION 50ML, 0.9% NS 100ML
     Route: 041
     Dates: start: 20220125, end: 20220125

REACTIONS (2)
  - Bronchitis [Unknown]
  - Leukopenia [Recovered/Resolved]

NARRATIVE: CASE EVENT DATE: 20220203
